FAERS Safety Report 6043302-8 (Version None)
Quarter: 2009Q1

REPORT INFORMATION
  Report Type: 
  Country: None (occurrence: None)
  Receive Date: 20090120
  Receipt Date: 20090113
  Transmission Date: 20090719
  Serious: Yes (Other)
  Sender: FDA-Public Use
  Company Number: US-RANBAXY-2009US-20464

PATIENT

DRUGS (3)
  1. ISOTRETINOIN [Suspect]
     Indication: ACNE
     Dosage: 40 MG, UNK
     Route: 048
     Dates: start: 20080801, end: 20081001
  2. CLARAVIS [Suspect]
     Indication: ACNE
     Dosage: 40 MG, UNK
     Route: 048
     Dates: start: 20081001, end: 20081001
  3. AMNESTEEM [Suspect]
     Indication: ACNE
     Dosage: 40 MG, UNK
     Route: 048
     Dates: start: 20081001, end: 20081101

REACTIONS (2)
  - ABDOMINAL PAIN [None]
  - GASTROINTESTINAL ULCER [None]
